FAERS Safety Report 8708858 (Version 3)
Quarter: 2013Q2

REPORT INFORMATION
  Report Type: Spontaneous
  Country: US (occurrence: US)
  Receive Date: 20120806
  Receipt Date: 20130626
  Transmission Date: 20140414
  Serious: No
  Sender: FDA-Public Use
  Company Number: US-009507513-2012SP029411

PATIENT
  Age: 69 Year
  Sex: Female

DRUGS (2)
  1. AFRIN ALL NIGHT NO DRIP [Suspect]
     Indication: DYSPNOEA
     Dosage: 1 DF, ONCE
     Route: 045
     Dates: start: 20120501
  2. AFRIN ALL NIGHT NO DRIP [Suspect]
     Indication: NASAL CONGESTION

REACTIONS (5)
  - Burning sensation [Recovered/Resolved]
  - Nasal discomfort [Recovered/Resolved]
  - Pain [Recovered/Resolved]
  - Throat irritation [Recovered/Resolved]
  - Expired drug administered [Recovered/Resolved]
